FAERS Safety Report 24775742 (Version 1)
Quarter: 2024Q4

REPORT INFORMATION
  Report Type: Spontaneous
  Country: US (occurrence: US)
  Receive Date: 20241226
  Receipt Date: 20241226
  Transmission Date: 20250115
  Serious: No
  Sender: HIKMA
  Company Number: HIKM2403629

PATIENT
  Sex: Female

DRUGS (1)
  1. FLUTICASONE PROPIONATE AND SALMETEROL [Suspect]
     Active Substance: FLUTICASONE PROPIONATE\SALMETEROL XINAFOATE
     Indication: Wheezing
     Dosage: 1 DOSAGE FORM, BID (MORNING AND NIGHT)
     Route: 048

REACTIONS (2)
  - Muscle spasms [Unknown]
  - Product used for unknown indication [Unknown]
